FAERS Safety Report 7029284-0 (Version None)
Quarter: 2010Q4

REPORT INFORMATION
  Report Type: 
  Country: None (occurrence: None)
  Receive Date: 20101005
  Receipt Date: 20100921
  Transmission Date: 20110411
  Serious: Yes (Other)
  Sender: FDA-Public Use
  Company Number: PHHY2010US62780

PATIENT
  Sex: Female

DRUGS (1)
  1. FEMARA [Suspect]
     Dosage: 2.5MG, DAILY
     Route: 048
     Dates: start: 20100623

REACTIONS (3)
  - DEPRESSION [None]
  - MOOD SWINGS [None]
  - NAUSEA [None]
